FAERS Safety Report 7604060-6 (Version None)
Quarter: 2011Q3

REPORT INFORMATION
  Report Type: 
  Country: None (occurrence: None)
  Receive Date: 20110711
  Receipt Date: 20110711
  Transmission Date: 20111222
  Serious: Yes (Other)
  Sender: FDA-Public Use
  Company Number: None

PATIENT
  Age: 56 Year
  Sex: Female
  Weight: 74.8435 kg

DRUGS (2)
  1. LEVAQUIN [Suspect]
     Indication: PROPHYLAXIS
     Dosage: 750MG  DAILY PO
     Route: 048
     Dates: start: 20110527, end: 20110603
  2. LEVAQUIN [Suspect]
     Indication: ANORECTAL OPERATION
     Dosage: 750MG  DAILY PO
     Route: 048
     Dates: start: 20110527, end: 20110603

REACTIONS (4)
  - ARTHRALGIA [None]
  - MUSCULOSKELETAL PAIN [None]
  - SLEEP DISORDER [None]
  - JOINT RANGE OF MOTION DECREASED [None]
